FAERS Safety Report 14317500 (Version 2)
Quarter: 2018Q1

REPORT INFORMATION
  Report Type: Spontaneous
  Country: JP (occurrence: JP)
  Receive Date: 20171222
  Receipt Date: 20180123
  Transmission Date: 20180509
  Serious: Yes (Hospitalization, Other)
  Sender: FDA-Public Use
  Company Number: JP-009507513-1712JPN002035J

PATIENT
  Age: 75 Year
  Sex: Male
  Weight: 65 kg

DRUGS (3)
  1. FAMOTIDINE. [Concomitant]
     Active Substance: FAMOTIDINE
     Indication: MEDICAL PROCEDURE
     Dosage: UNK
     Route: 042
     Dates: start: 20171124, end: 20171126
  2. CEFAZOLIN SODIUM. [Concomitant]
     Active Substance: CEFAZOLIN SODIUM
     Indication: MEDICAL PROCEDURE
     Dosage: UNK
     Route: 042
     Dates: start: 20171124, end: 20171126
  3. CUBICIN [Suspect]
     Active Substance: DAPTOMYCIN
     Indication: ENDOCARDITIS STAPHYLOCOCCAL
     Dosage: UNK
     Route: 041
     Dates: start: 20171122, end: 20171214

REACTIONS (1)
  - Pneumonia [Recovering/Resolving]

NARRATIVE: CASE EVENT DATE: 20171209
